FAERS Safety Report 11359931 (Version 1)
Quarter: 2015Q3

REPORT INFORMATION
  Report Type: Not Available
  Country: US (occurrence: US)
  Receive Date: 20150810
  Receipt Date: 20150810
  Transmission Date: 20151125
  Serious: No
  Sender: FDA-Public Use
  Company Number: US-LUPIN PHARMACEUTICALS INC.-E2B_00003874

PATIENT
  Sex: Male
  Weight: 92.16 kg

DRUGS (1)
  1. IRBESARTAN TABLETS USP 300 MG [Suspect]
     Active Substance: IRBESARTAN
     Indication: HYPERTENSION
     Dates: end: 20150701

REACTIONS (1)
  - Pollakiuria [Not Recovered/Not Resolved]
